FAERS Safety Report 21297791 (Version 8)
Quarter: 2024Q4

REPORT INFORMATION
  Report Type: Spontaneous
  Country: US (occurrence: US)
  Receive Date: 20220906
  Receipt Date: 20241018
  Transmission Date: 20250115
  Serious: Yes (Hospitalization, Other)
  Sender: PFIZER
  Company Number: US-PFIZER INC-PV202200055896

PATIENT
  Age: 91 Year
  Sex: Female
  Weight: 65.86 kg

DRUGS (3)
  1. IBRANCE [Suspect]
     Active Substance: PALBOCICLIB
     Indication: Breast cancer metastatic
     Dosage: QD (ONCE A DAY) DAYS 1-21 Q (EVERY) 28 DAYS
     Route: 048
     Dates: start: 20220805
  2. IBRANCE [Suspect]
     Active Substance: PALBOCICLIB
     Dosage: TAKE 1 TABLET DAYS 1-21 Q 28 DAYS/ 100 MG QD X 21 DAYS OFF X 7 DAYS
     Route: 048
     Dates: start: 202409
  3. LETROZOLE [Concomitant]
     Active Substance: LETROZOLE
     Dosage: UNK
     Dates: start: 20220729

REACTIONS (13)
  - Neutropenia [Unknown]
  - Neoplasm progression [Unknown]
  - Pulmonary mass [Unknown]
  - Mean cell volume increased [Unknown]
  - Mean cell haemoglobin concentration decreased [Unknown]
  - Red cell distribution width increased [Unknown]
  - Monocyte count decreased [Unknown]
  - Blood lactate dehydrogenase increased [Unknown]
  - Blood glucose increased [Unknown]
  - Blood urea increased [Unknown]
  - Glomerular filtration rate decreased [Unknown]
  - Blood alkaline phosphatase increased [Unknown]
  - Product dispensing error [Unknown]
